FAERS Safety Report 4662577-0 (Version None)
Quarter: 2005Q2

REPORT INFORMATION
  Report Type: 
  Country: None (occurrence: None)
  Receive Date: 20050513
  Receipt Date: 20050513
  Transmission Date: 20051028
  Serious: Yes (Hospitalization)
  Sender: FDA-Public Use
  Company Number: None

PATIENT
  Age: 78 Year
  Sex: Male

DRUGS (17)
  1. WARFARIN [Suspect]
     Indication: CEREBROVASCULAR ACCIDENT
     Dosage: 7.5MG  QHS PO
     Route: 048
     Dates: start: 20050226, end: 20050311
  2. CLOPIDOGREL [Suspect]
     Indication: CEREBROVASCULAR ACCIDENT
     Dosage: 75MG  QD PO
     Route: 048
     Dates: start: 20050226, end: 20050311
  3. COMBIVENT [Concomitant]
  4. ASPIRIN [Concomitant]
  5. ATENOLOL [Concomitant]
  6. PLAVIX [Concomitant]
  7. AEROBID [Concomitant]
  8. GUAIFENESIN [Concomitant]
  9. HYDROCHLOROTHIAZIDE [Concomitant]
  10. IRBESARTAN [Concomitant]
  11. ISOSORBIDE DINITRATE [Concomitant]
  12. MECLIZINE [Concomitant]
  13. SUBLINGUAL NITROGLYCERIN [Concomitant]
  14. OMEPRAZOLE [Concomitant]
  15. PREDNISONE TAB [Concomitant]
  16. SIMVASTATIN [Concomitant]
  17. WARFARIN [Concomitant]

REACTIONS (3)
  - ECCHYMOSIS [None]
  - EPISTAXIS [None]
  - INTERNATIONAL NORMALISED RATIO INCREASED [None]
